FAERS Safety Report 6194531-4 (Version None)
Quarter: 2009Q2

REPORT INFORMATION
  Report Type: 
  Country: None (occurrence: None)
  Receive Date: 20090515
  Receipt Date: 20090429
  Transmission Date: 20091009
  Serious: Yes (Other)
  Sender: FDA-Public Use
  Company Number: 2009EU001820

PATIENT
  Sex: Male

DRUGS (1)
  1. PROGRAF [Suspect]
     Indication: RENAL TRANSPLANT
     Dosage: 25 MG UID/QD IV NOS; 4 MG BID UNK
     Route: 042
     Dates: start: 20090428, end: 20090429

REACTIONS (2)
  - DRUG ADMINISTRATION ERROR [None]
  - IMMUNOSUPPRESSANT DRUG LEVEL INCREASED [None]
